FAERS Safety Report 8404207-8 (Version None)
Quarter: 2012Q2

REPORT INFORMATION
  Report Type: 
  Country: None (occurrence: None)
  Receive Date: 20120601
  Receipt Date: 20111018
  Transmission Date: 20120825
  Serious: No
  Sender: FDA-Public Use
  Company Number: US-NOVEN-11US003460

PATIENT
  Age: 7 Year
  Sex: Female
  Weight: 22.676 kg

DRUGS (2)
  1. DAYTRANA [Suspect]
     Dosage: 3/4 10MG QD
     Dates: start: 20110101
  2. DAYTRANA [Suspect]
     Indication: CHANGE IN SUSTAINED ATTENTION
     Dosage: 1/2 10MG QD
     Route: 062
     Dates: start: 20110823

REACTIONS (6)
  - WRONG TECHNIQUE IN DRUG USAGE PROCESS [None]
  - DRUG PRESCRIBING ERROR [None]
  - PRODUCT QUALITY ISSUE [None]
  - APPLICATION SITE PRURITUS [None]
  - APPLICATION SITE ERYTHEMA [None]
  - PRODUCT ADHESION ISSUE [None]
